FAERS Safety Report 6711109-1 (Version None)
Quarter: 2010Q2

REPORT INFORMATION
  Report Type: 
  Country: None (occurrence: None)
  Receive Date: 20100505
  Receipt Date: 20100421
  Transmission Date: 20101027
  Serious: No
  Sender: FDA-Public Use
  Company Number: PHHY2010GB09669

PATIENT
  Sex: Female

DRUGS (1)
  1. CLOZARIL [Suspect]
     Indication: SCHIZOPHRENIA, PARANOID TYPE
     Dosage: 225 MG, UNK
     Route: 048
     Dates: start: 20060629

REACTIONS (2)
  - DYSARTHRIA [None]
  - GAIT DISTURBANCE [None]
